FAERS Safety Report 16370017 (Version 1)
Quarter: 2019Q2

REPORT INFORMATION
  Report Type: Spontaneous
  Country: US (occurrence: US)
  Receive Date: 20190530
  Receipt Date: 20190530
  Transmission Date: 20190711
  Serious: No
  Sender: FDA-Public Use
  Company Number: US-VIVIMED-2018SP007273

PATIENT
  Age: 16 Year
  Sex: Female

DRUGS (6)
  1. ZOLPIDEM [Suspect]
     Active Substance: ZOLPIDEM\ZOLPIDEM TARTRATE
     Dosage: ZOLPIDEM 10 MG IN MORNING
     Route: 065
  2. IMMUNOGLOBULIN                     /00025201/ [Concomitant]
     Active Substance: HUMAN IMMUNOGLOBULIN G
     Indication: PRODUCT USED FOR UNKNOWN INDICATION
     Dosage: 2 G/KG
     Route: 042
  3. METHYLPREDNISOLONE. [Concomitant]
     Active Substance: METHYLPREDNISOLONE
     Dosage: DOSE TAPERED
     Route: 065
  4. ZOLPIDEM [Suspect]
     Active Substance: ZOLPIDEM\ZOLPIDEM TARTRATE
     Indication: CIRCADIAN RHYTHM SLEEP DISORDER
     Dosage: 10 MG, AT BED TIME
     Route: 065
  5. METHYLPREDNISOLONE. [Concomitant]
     Active Substance: METHYLPREDNISOLONE
     Indication: PRODUCT USED FOR UNKNOWN INDICATION
     Dosage: 1 G, UNKNOWN
  6. ZOLPIDEM [Suspect]
     Active Substance: ZOLPIDEM\ZOLPIDEM TARTRATE
     Dosage: DOSE DECREASED
     Route: 065

REACTIONS (1)
  - Therapeutic response unexpected [Unknown]
